FAERS Safety Report 4737385-2 (Version None)
Quarter: 2005Q3

REPORT INFORMATION
  Report Type: 
  Country: None (occurrence: None)
  Receive Date: 20050805
  Receipt Date: 20050729
  Transmission Date: 20060218
  Serious: Yes (Hospitalization, Other)
  Sender: FDA-Public Use
  Company Number: 2005108634

PATIENT
  Age: 69 Year
  Sex: Male
  Weight: 208 kg

DRUGS (3)
  1. LIPITOR [Suspect]
     Indication: BLOOD CHOLESTEROL INCREASED
     Dosage: 10 MG(10 MG, 1 IN 1 D)
  2. ACETYLSALICYLIC ACID SRT [Concomitant]
  3. RISPERIDONE (RESPERIDONE) [Concomitant]

REACTIONS (9)
  - ABNORMAL BEHAVIOUR [None]
  - DEMENTIA ALZHEIMER'S TYPE [None]
  - ENURESIS [None]
  - HEADACHE [None]
  - HYPOAESTHESIA [None]
  - MYOCARDIAL INFARCTION [None]
  - NAUSEA [None]
  - PAIN [None]
  - WEIGHT DECREASED [None]
